FAERS Safety Report 11873726 (Version 1)
Quarter: 2015Q4

REPORT INFORMATION
  Report Type: Spontaneous
  Country: ES (occurrence: ES)
  Receive Date: 20151229
  Receipt Date: 20151229
  Transmission Date: 20160305
  Serious: Yes (Hospitalization, Other)
  Sender: FDA-Public Use
  Company Number: PHHY2015ES169138

PATIENT
  Age: 72 Year
  Sex: Male

DRUGS (2)
  1. PHYTONADIONE. [Suspect]
     Active Substance: PHYTONADIONE
     Indication: HAEMATURIA
     Dosage: 20 MG, UNK
     Route: 042
  2. PHYTONADIONE. [Suspect]
     Active Substance: PHYTONADIONE
     Indication: INTERNATIONAL NORMALISED RATIO INCREASED

REACTIONS (3)
  - Vascular stent thrombosis [Unknown]
  - Acute myocardial infarction [Unknown]
  - International normalised ratio decreased [Unknown]
